FAERS Safety Report 5184684-9 (Version None)
Quarter: 2006Q4

REPORT INFORMATION
  Report Type: 
  Country: None (occurrence: None)
  Receive Date: 20061220
  Receipt Date: 20061106
  Transmission Date: 20070319
  Serious: Yes (Other)
  Sender: FDA-Public Use
  Company Number: PHBS2006JP17400

PATIENT
  Age: 69 Year
  Sex: Male
  Weight: 166 kg

DRUGS (14)
  1. ZOMETA [Suspect]
     Indication: HYPERCALCAEMIA OF MALIGNANCY
     Dosage: 4 MG, ONCE/SINGLE
     Route: 041
     Dates: start: 20061102, end: 20061102
  2. ANPEC [Suspect]
  3. LOXONIN [Suspect]
     Route: 048
  4. GASTER [Concomitant]
     Dosage: 2 DF/D
     Route: 048
  5. MAGMITT KENEI [Concomitant]
     Dosage: 3 DF/D
     Route: 048
  6. VOLTAREN [Concomitant]
     Dosage: 3 DF/D
     Route: 048
  7. SELBEX [Concomitant]
     Dosage: 3 DF/D
     Route: 048
  8. MUCOSOLVAN [Concomitant]
     Dosage: 1 DF/D
     Route: 048
  9. NOVAMIN [Concomitant]
     Dosage: 2 DF/D
     Route: 048
  10. ALLOPURINOL [Concomitant]
     Dosage: 1 DF/D
     Route: 048
  11. FERROMIA [Concomitant]
     Dosage: 2 DF/D
     Route: 048
  12. OXYCONTIN [Concomitant]
     Dosage: 2 DF/D
     Route: 048
  13. MS CONTIN [Concomitant]
  14. OPSO DAINIPPON [Concomitant]

REACTIONS (8)
  - DECREASED APPETITE [None]
  - DISORIENTATION [None]
  - ERUCTATION [None]
  - GASTRIC ULCER HAEMORRHAGE [None]
  - NAUSEA [None]
  - OCCULT BLOOD POSITIVE [None]
  - PYREXIA [None]
  - VOMITING [None]
